FAERS Safety Report 8586274-4 (Version None)
Quarter: 2012Q3

REPORT INFORMATION
  Report Type: 
  Country: None (occurrence: None)
  Receive Date: 20120810
  Receipt Date: 20120731
  Transmission Date: 20120928
  Serious: Yes (Hospitalization)
  Sender: FDA-Public Use
  Company Number: HK-SANOFI-AVENTIS-2012SA054533

PATIENT
  Age: 53 Year
  Sex: Female

DRUGS (3)
  1. DOCETAXEL [Suspect]
     Route: 042
     Dates: start: 20120718, end: 20120721
  2. CISPLATIN [Suspect]
     Route: 042
     Dates: start: 20120718, end: 20120721
  3. FLUOROURACIL [Suspect]
     Route: 042
     Dates: start: 20120718, end: 20120721

REACTIONS (4)
  - URINARY RETENTION [None]
  - HYPONATRAEMIA [None]
  - SPEECH DISORDER [None]
  - HYPOKALAEMIA [None]
